FAERS Safety Report 8780509 (Version 1)
Quarter: 2012Q4

REPORT INFORMATION
  Report Type: Spontaneous
  Country: US (occurrence: None)
  Receive Date: 20120829
  Receipt Date: 20120829
  Transmission Date: 20130627
  Serious: Yes (Hospitalization)
  Sender: FDA-Public Use
  Company Number: 1383976

PATIENT
  Age: 83 Year
  Sex: Male
  Weight: 65.2 kg

DRUGS (14)
  1. VANCOMYCIN HYDROCHLORIDE [Suspect]
     Route: 042
     Dates: start: 20120201, end: 20120306
  2. SODIUM CHLORIDE [Concomitant]
  3. CEFEPIME [Concomitant]
  4. ASA [Concomitant]
  5. SERTRALINE [Concomitant]
  6. CARVEDILOL [Concomitant]
  7. IRON [Concomitant]
  8. IMDUR [Concomitant]
  9. K-DUR [Concomitant]
  10. PROSLO [Concomitant]
  11. LENOL WITH CODEIN #3 [Concomitant]
  12. SPIRIVA [Concomitant]
  13. PROAIR [Concomitant]
  14. COMBIVENT [Concomitant]

REACTIONS (2)
  - Heart rate decreased [None]
  - Mental disorder [None]
